FAERS Safety Report 4511948-1 (Version None)
Quarter: 2004Q4

REPORT INFORMATION
  Report Type: 
  Country: None (occurrence: None)
  Receive Date: 20041123
  Receipt Date: 20041111
  Transmission Date: 20050328
  Serious: Yes (Death, Hospitalization, Other)
  Sender: FDA-Public Use
  Company Number: 15199

PATIENT
  Age: 52 Year
  Sex: Female

DRUGS (1)
  1. LEUCOVORIN CALCIUM FOR INJ. 50MG - BEN VENUE LABS, INC. [Suspect]
     Dosage: REFER TO ATTACHMENT (12719696

REACTIONS (1)
  - INTESTINAL OBSTRUCTION [None]
